FAERS Safety Report 20658953 (Version 1)
Quarter: 2022Q1

REPORT INFORMATION
  Report Type: Spontaneous
  Country: DE (occurrence: DE)
  Receive Date: 20220331
  Receipt Date: 20220331
  Transmission Date: 20220424
  Serious: Yes (Death, Other)
  Sender: FDA-Public Use
  Company Number: DE-002147023-NVSC2022DE042883

PATIENT
  Age: 37 Year
  Sex: Male

DRUGS (2)
  1. DIAZEPAM [Suspect]
     Active Substance: DIAZEPAM
     Indication: Product used for unknown indication
     Dosage: UNK
     Route: 065
  2. FENTANYL [Suspect]
     Active Substance: FENTANYL
     Indication: Product used for unknown indication
     Dosage: UNK
     Route: 055

REACTIONS (9)
  - Dyspnoea [Fatal]
  - Fall [Fatal]
  - Circulatory collapse [Fatal]
  - Intentional overdose [Fatal]
  - Drug abuse [Unknown]
  - Drug dependence [Unknown]
  - Malaise [Unknown]
  - Feeling abnormal [Unknown]
  - Wrong technique in product usage process [Unknown]
